FAERS Safety Report 5102176-X (Version None)
Quarter: 2006Q3

REPORT INFORMATION
  Report Type: 
  Country: None (occurrence: None)
  Receive Date: 20060912
  Receipt Date: 20060904
  Transmission Date: 20061208
  Serious: Yes (Death, Other)
  Sender: FDA-Public Use
  Company Number: PHBS2006KE13488

PATIENT
  Age: 37 Year
  Sex: Female

DRUGS (5)
  1. FOLATE SODIUM [Concomitant]
  2. DEFEROXAMINE MESYLATE [Suspect]
     Indication: HAEMOSIDEROSIS
     Dosage: 2 G FOLLOWING EACH BLOOD TRANSFUSION
     Route: 065
  3. BLOOD TRANSFUSION, AUXILIARY PRODUCTS [Concomitant]
  4. OXYMETHOLONE [Concomitant]
  5. PREDNISONE TAB [Concomitant]

REACTIONS (20)
  - ABDOMINAL PAIN [None]
  - ABDOMINAL PAIN UPPER [None]
  - ARRHYTHMIA [None]
  - ASCITES [None]
  - ASTHENIA [None]
  - CARDIAC FAILURE CONGESTIVE [None]
  - CARDIOMYOPATHY [None]
  - DIABETES MELLITUS [None]
  - HEPATIC FAILURE [None]
  - HEPATIC NEOPLASM [None]
  - HEPATOMEGALY [None]
  - JAUNDICE [None]
  - LIVER DISORDER [None]
  - LIVER FUNCTION TEST ABNORMAL [None]
  - LIVER TENDERNESS [None]
  - OEDEMA [None]
  - PIGMENTATION DISORDER [None]
  - SERUM FERRITIN INCREASED [None]
  - SPLENOMEGALY [None]
  - WEIGHT DECREASED [None]
